FAERS Safety Report 10830112 (Version 1)
Quarter: 2015Q1

REPORT INFORMATION
  Report Type: Report from Study
  Country: US (occurrence: US)
  Receive Date: 20150219
  Receipt Date: 20150219
  Transmission Date: 20150721
  Serious: No
  Sender: FDA-Public Use
  Company Number: US-ABBVIE-14P-163-1190262-00

PATIENT
  Sex: Female
  Weight: 59.02 kg

DRUGS (23)
  1. HUMIRA [Suspect]
     Active Substance: ADALIMUMAB
     Dates: start: 2013
  2. HUMIRA [Suspect]
     Active Substance: ADALIMUMAB
     Indication: RHEUMATOID ARTHRITIS
     Dates: start: 2003, end: 201401
  3. HUMIRA [Suspect]
     Active Substance: ADALIMUMAB
     Dates: start: 201401
  4. IBUPROFEN. [Concomitant]
     Active Substance: IBUPROFEN
     Indication: SWELLING
  5. FOLATE [Concomitant]
     Active Substance: FOLATE SODIUM
     Indication: VITAMIN SUPPLEMENTATION
  6. HUMIRA [Suspect]
     Active Substance: ADALIMUMAB
     Dates: start: 2013, end: 2013
  7. COQ10 [Concomitant]
     Active Substance: UBIDECARENONE
     Indication: ENZYME SUPPLEMENTATION
  8. GINGER. [Concomitant]
     Active Substance: GINGER
     Indication: VITAMIN SUPPLEMENTATION
  9. ZINC [Concomitant]
     Active Substance: ZINC\ZINC CHLORIDE
     Indication: SUPPLEMENTATION THERAPY
  10. CALCIUM [Concomitant]
     Active Substance: CALCIUM
     Indication: MINERAL SUPPLEMENTATION
  11. METHOTREXATE [Concomitant]
     Active Substance: METHOTREXATE
     Indication: RHEUMATOID ARTHRITIS
  12. HUMIRA [Suspect]
     Active Substance: ADALIMUMAB
     Indication: RHEUMATOID ARTHRITIS
     Dates: start: 200301, end: 2012
  13. AMBIEN [Concomitant]
     Active Substance: ZOLPIDEM TARTRATE
     Indication: INSOMNIA
  14. CALCIUM [Concomitant]
     Active Substance: CALCIUM
     Indication: MINERAL SUPPLEMENTATION
  15. PHYTOCORTAL [Concomitant]
     Indication: SUPPLEMENTATION THERAPY
  16. HUMIRA [Suspect]
     Active Substance: ADALIMUMAB
     Dates: start: 2012, end: 2013
  17. IBUPROFEN. [Concomitant]
     Active Substance: IBUPROFEN
     Indication: RHEUMATOID ARTHRITIS
  18. CETACORT [Concomitant]
     Indication: RHEUMATOID ARTHRITIS
  19. PREDNISONE. [Concomitant]
     Active Substance: PREDNISONE
     Indication: RHEUMATOID ARTHRITIS
  20. VITAMIN D [Concomitant]
     Active Substance: CHOLECALCIFEROL
     Indication: VITAMIN SUPPLEMENTATION
  21. TUMERIC WITH PEPPERINE [Concomitant]
     Indication: SUPPLEMENTATION THERAPY
  22. FISH OIL [Concomitant]
     Active Substance: FISH OIL
     Indication: SUPPLEMENTATION THERAPY
  23. TUMERIC [Concomitant]
     Indication: SUPPLEMENTATION THERAPY

REACTIONS (13)
  - Gait disturbance [Not Recovered/Not Resolved]
  - Rheumatoid arthritis [Not Recovered/Not Resolved]
  - Local swelling [Recovered/Resolved]
  - Rheumatoid nodule [Not Recovered/Not Resolved]
  - Fatigue [Not Recovered/Not Resolved]
  - Drug administered at inappropriate site [Not Recovered/Not Resolved]
  - Drug resistance [Recovered/Resolved]
  - Skin discolouration [Recovered/Resolved]
  - Joint swelling [Recovered/Resolved]
  - Joint swelling [Not Recovered/Not Resolved]
  - Injection site pain [Recovered/Resolved]
  - Nasopharyngitis [Not Recovered/Not Resolved]
  - Peripheral swelling [Not Recovered/Not Resolved]

NARRATIVE: CASE EVENT DATE: 2003
